FAERS Safety Report 25825919 (Version 1)
Quarter: 2025Q3

REPORT INFORMATION
  Report Type: Spontaneous
  Country: US (occurrence: US)
  Receive Date: 20250919
  Receipt Date: 20250919
  Transmission Date: 20251021
  Serious: Yes (Hospitalization)
  Sender: DR REDDYS
  Company Number: None

PATIENT
  Age: 52 Year
  Sex: Female

DRUGS (2)
  1. LAMOTRIGINE [Suspect]
     Active Substance: LAMOTRIGINE
     Indication: Product used for unknown indication
  2. BRIVARACETAM [Concomitant]
     Active Substance: BRIVARACETAM
     Indication: Product used for unknown indication

REACTIONS (10)
  - Seizure [Unknown]
  - Encephalopathy [Unknown]
  - Nausea [Unknown]
  - Vomiting [Unknown]
  - Ataxia [Unknown]
  - Gaze palsy [Unknown]
  - Toxicity to various agents [Unknown]
  - Diplopia [Unknown]
  - Fall [Unknown]
  - Nystagmus [Unknown]
